FAERS Safety Report 8603102-9 (Version None)
Quarter: 2012Q3

REPORT INFORMATION
  Report Type: 
  Country: None (occurrence: None)
  Receive Date: 20120817
  Receipt Date: 20111018
  Transmission Date: 20120928
  Serious: No
  Sender: FDA-Public Use
  Company Number: US-GLAXOSMITHKLINE-A0949495A

PATIENT
  Sex: Female

DRUGS (1)
  1. TAGAMET HB 200 [Suspect]
     Indication: PRODUCT USED FOR UNKNOWN INDICATION
     Dates: start: 20111018

REACTIONS (1)
  - DRUG INEFFECTIVE [None]
